FAERS Safety Report 18865047 (Version 2)
Quarter: 2021Q1

REPORT INFORMATION
  Report Type: Spontaneous
  Country: JP (occurrence: JP)
  Receive Date: 20210208
  Receipt Date: 20210224
  Transmission Date: 20210420
  Serious: Yes (Hospitalization, Other)
  Sender: FDA-Public Use
  Company Number: JP-B.I. PHARMACEUTICALS,INC./RIDGEFIELD-2021-BI-081108

PATIENT
  Age: 72 Year
  Sex: Male

DRUGS (1)
  1. MOBIC [Suspect]
     Active Substance: MELOXICAM
     Indication: BACK PAIN
     Route: 065

REACTIONS (4)
  - Bladder cancer [Unknown]
  - Ileus [Recovered/Resolved]
  - Small intestinal stenosis [Recovered/Resolved]
  - Gastrointestinal haemorrhage [Unknown]
